FAERS Safety Report 5735783-1 (Version None)
Quarter: 2008Q2

REPORT INFORMATION
  Report Type: 
  Country: None (occurrence: None)
  Receive Date: 20080508
  Receipt Date: 20080508
  Transmission Date: 20081010
  Serious: Yes (Other)
  Sender: FDA-Public Use
  Company Number: None

PATIENT
  Sex: Female
  Weight: 63.5036 kg

DRUGS (3)
  1. CREST PRO HEALTH [Suspect]
     Indication: BREATH ODOUR
     Dosage: 4 TEASPOONS  2 TIMES A DAY
     Dates: start: 20080117, end: 20080507
  2. CREST PRO HEALTH [Suspect]
     Indication: DENTAL PLAQUE
     Dosage: 4 TEASPOONS  2 TIMES A DAY
     Dates: start: 20080117, end: 20080507
  3. CREST PRO HEALTH [Suspect]
     Indication: GINGIVITIS
     Dosage: 4 TEASPOONS  2 TIMES A DAY
     Dates: start: 20080117, end: 20080507

REACTIONS (1)
  - TOOTH DISCOLOURATION [None]
